FAERS Safety Report 17456701 (Version 2)
Quarter: 2020Q1

REPORT INFORMATION
  Report Type: Report from Study
  Country: US (occurrence: US)
  Receive Date: 20200225
  Receipt Date: 20200228
  Transmission Date: 20200409
  Serious: Yes (Hospitalization, Other)
  Sender: FDA-Public Use
  Company Number: US-BAYER-2020-031372

PATIENT
  Age: 56 Year
  Sex: Female

DRUGS (2)
  1. NEXAVAR [Suspect]
     Active Substance: SORAFENIB
     Indication: BREAST CANCER
     Dosage: 400 MG, BID
     Route: 048
     Dates: start: 20200130
  2. NEXAVAR [Suspect]
     Active Substance: SORAFENIB
     Indication: HEPATOCELLULAR CARCINOMA

REACTIONS (7)
  - Depression [Not Recovered/Not Resolved]
  - Exercise tolerance decreased [Unknown]
  - Heart rate increased [None]
  - Sinusitis [Recovered/Resolved]
  - Hypertension [None]
  - Sepsis [Recovered/Resolved]
  - Asthenia [Not Recovered/Not Resolved]
